FAERS Safety Report 9274506 (Version 1)
Quarter: 2013Q2

REPORT INFORMATION
  Report Type: Spontaneous
  Country: DE (occurrence: DE)
  Receive Date: 20130507
  Receipt Date: 20130507
  Transmission Date: 20140414
  Serious: Yes (Hospitalization)
  Sender: FDA-Public Use
  Company Number: DE-ROCHE-1218467

PATIENT
  Age: 72 Year
  Sex: Male
  Weight: 77 kg

DRUGS (7)
  1. RITUXIMAB [Suspect]
     Indication: B-CELL LYMPHOMA
     Dosage: DAY 1 AND DAY 2 OF EACH CYCLE
     Route: 042
     Dates: start: 20121205, end: 20130221
  2. INEGY [Concomitant]
     Route: 065
  3. PHENHYDAN [Concomitant]
     Route: 065
  4. BISOBETA [Concomitant]
     Route: 065
  5. RAMILICH [Concomitant]
     Route: 065
  6. ASS [Concomitant]
     Route: 065
  7. LYRICA [Concomitant]
     Route: 065

REACTIONS (4)
  - Myocardial infarction [Recovering/Resolving]
  - Dyspnoea [Recovered/Resolved]
  - Chest discomfort [Recovered/Resolved]
  - Troponin I increased [Unknown]
